FAERS Safety Report 20656927 (Version 1)
Quarter: 2022Q1

REPORT INFORMATION
  Report Type: Spontaneous
  Country: US (occurrence: US)
  Receive Date: 20220331
  Receipt Date: 20220331
  Transmission Date: 20220423
  Serious: Yes (Other)
  Sender: FDA-Public Use
  Company Number: US-BRISTOL-MYERS SQUIBB COMPANY-2022-012800

PATIENT
  Age: 74 Year
  Sex: Female
  Weight: 55.3 kg

DRUGS (1)
  1. POMALYST [Suspect]
     Active Substance: POMALIDOMIDE
     Indication: Product used for unknown indication
     Dosage: 1 CAPSULE DAILY FOR 7 DAYS ON FOLLOWED BY 7 DAYS OFF THEN RESTART
     Route: 048
     Dates: start: 20200905

REACTIONS (1)
  - Neutropenia [Not Recovered/Not Resolved]
